FAERS Safety Report 4448956-5 (Version None)
Quarter: 2004Q3

REPORT INFORMATION
  Report Type: 
  Country: None (occurrence: None)
  Receive Date: 20040909
  Receipt Date: 20040820
  Transmission Date: 20050211
  Serious: Yes (Other)
  Sender: FDA-Public Use
  Company Number: USA040875970

PATIENT
  Sex: Female

DRUGS (2)
  1. EVISTA [Suspect]
  2. PREDNISONE [Concomitant]

REACTIONS (2)
  - FATIGUE [None]
  - SARCOIDOSIS [None]
